FAERS Safety Report 25840688 (Version 1)
Quarter: 2025Q3

REPORT INFORMATION
  Report Type: Spontaneous
  Country: JP (occurrence: JP)
  Receive Date: 20250924
  Receipt Date: 20250924
  Transmission Date: 20251020
  Serious: Yes (Hospitalization)
  Sender: ROCHE
  Company Number: JP-CHEPLA-2025010863

PATIENT
  Age: 70 Year
  Sex: Male

DRUGS (3)
  1. BEVACIZUMAB [Suspect]
     Active Substance: BEVACIZUMAB
     Indication: Colorectal cancer
     Dosage: Q3W, IV DRIP
     Route: 042
     Dates: start: 20250423
  2. CAPECITABINE [Suspect]
     Active Substance: CAPECITABINE
     Indication: Colorectal cancer
     Dosage: Q3W, TWICE DAILY, FROM DAY 1 TO DAY 14 OF EACH CYCLE;
     Route: 048
     Dates: start: 20250423
  3. OXALIPLATIN [Suspect]
     Active Substance: OXALIPLATIN
     Indication: Colorectal cancer
     Dosage: Q3W, IV DRIP
     Route: 042
     Dates: start: 20250423

REACTIONS (3)
  - Flank pain [Unknown]
  - Decreased appetite [Unknown]
  - Infection [Not Recovered/Not Resolved]

NARRATIVE: CASE EVENT DATE: 20250904
